FAERS Safety Report 4306908-X (Version None)
Quarter: 2004Q1

REPORT INFORMATION
  Report Type: 
  Country: None (occurrence: None)
  Receive Date: 20040227
  Receipt Date: 20040216
  Transmission Date: 20041129
  Serious: Yes (Hospitalization)
  Sender: FDA-Public Use
  Company Number: PHNU2004DE00898

PATIENT
  Age: 72 Year
  Sex: Female
  Weight: 69 kg

DRUGS (2)
  1. CRANOC (LICENSED, FUJISAWA DEUTSCHLAND) [Suspect]
     Indication: BLOOD CHOLESTEROL INCREASED
     Dosage: 80 MG, ONCE/SINGLE
     Route: 048
     Dates: start: 20030915, end: 20030915
  2. CRANOC (LICENSED, FUJISAWA DEUTSCHLAND) [Suspect]
     Dosage: 80 MG, ONCE/SINGLE
     Route: 048
     Dates: start: 20040130, end: 20040130

REACTIONS (6)
  - ABDOMINAL PAIN [None]
  - ASTHENIA [None]
  - BLOOD URINE [None]
  - HYPERHIDROSIS [None]
  - PAIN [None]
  - VOMITING [None]
